FAERS Safety Report 15951025 (Version 1)
Quarter: 2019Q1

REPORT INFORMATION
  Report Type: Spontaneous
  Country: US (occurrence: US)
  Receive Date: 20190211
  Receipt Date: 20190211
  Transmission Date: 20190417
  Serious: No
  Sender: FDA-Public Use
  Company Number: US-PERRIGO-18US013210

PATIENT
  Sex: Male
  Weight: 99.77 kg

DRUGS (1)
  1. IBUPROFEN AND DIPHENHYDRAMINE CITRATE [Suspect]
     Active Substance: DIPHENHYDRAMINE CITRATE\IBUPROFEN
     Indication: WRONG PRODUCT ADMINISTERED
     Dosage: 5 TABLETS, SINGLE
     Route: 048
     Dates: start: 20181114, end: 20181114

REACTIONS (3)
  - Somnolence [Unknown]
  - Overdose [Recovered/Resolved]
  - Product name confusion [Recovered/Resolved]

NARRATIVE: CASE EVENT DATE: 20181114
